FAERS Safety Report 16794409 (Version 1)
Quarter: 2019Q3

REPORT INFORMATION
  Report Type: Spontaneous
  Country: US (occurrence: US)
  Receive Date: 20190719
  Receipt Date: 20190719
  Transmission Date: 20191005
  Serious: Yes (Hospitalization)
  Sender: FDA-Public Use
  Company Number: None

PATIENT
  Age: 69 Year
  Sex: Male
  Weight: 86.4 kg

DRUGS (2)
  1. CYTARABINE. [Suspect]
     Active Substance: CYTARABINE
     Dates: end: 20190620
  2. DAUNORUBICIN [Concomitant]
     Active Substance: DAUNORUBICIN
     Dates: end: 20190616

REACTIONS (1)
  - Respiratory failure [None]

NARRATIVE: CASE EVENT DATE: 20190712
